FAERS Safety Report 9031745 (Version 1)
Quarter: 2013Q1

REPORT INFORMATION
  Report Type: Spontaneous
  Country: JP (occurrence: JP)
  Receive Date: 20130124
  Receipt Date: 20130124
  Transmission Date: 20140127
  Serious: Yes (Other)
  Sender: FDA-Public Use
  Company Number: JP-PFIZER INC-2013019077

PATIENT
  Age: 73 Year
  Sex: Male

DRUGS (7)
  1. HYDROCORTISONE [Suspect]
     Indication: ADRENOCORTICOTROPIC HORMONE DEFICIENCY
     Dosage: 20 MG
  2. PREDNISOLONE [Suspect]
     Dosage: 3.8 MG
  3. LEVOTHYROXINE [Concomitant]
     Indication: HYPOTHYROIDISM
     Dosage: 75 MICROG
  4. SULPIRIDE [Concomitant]
  5. ETIZOLAM [Concomitant]
  6. DULOXETINE [Concomitant]
     Indication: DEPRESSION
     Dosage: 40 MG
  7. THIAMAZOLE [Concomitant]
     Dosage: 40 MG/DAY

REACTIONS (1)
  - Hypomania [Recovered/Resolved]
